FAERS Safety Report 8385290 (Version 3)
Quarter: 2015Q1

REPORT INFORMATION
  Report Type: Report from Study
  Country: US (occurrence: US)
  Receive Date: 20120202
  Receipt Date: 20150226
  Transmission Date: 20150721
  Serious: Yes (Death, Hospitalization, Other)
  Sender: FDA-Public Use
  Company Number: US-ROCHE-1035768

PATIENT
  Age: 54 Year
  Sex: Male
  Weight: 113.5 kg

DRUGS (15)
  1. ALLOPURINOL. [Concomitant]
     Active Substance: ALLOPURINOL
     Route: 065
  2. 5-FU [Concomitant]
     Active Substance: FLUOROURACIL
     Route: 042
  3. AVASTIN [Suspect]
     Active Substance: BEVACIZUMAB
     Indication: RENAL CANCER
     Route: 042
     Dates: start: 20060911
  4. AVASTIN [Suspect]
     Active Substance: BEVACIZUMAB
     Indication: MALIGNANT URINARY TRACT NEOPLASM
     Route: 042
  5. TAXOTERE [Concomitant]
     Active Substance: DOCETAXEL
     Route: 042
  6. OXYCONTIN [Concomitant]
     Active Substance: OXYCODONE HYDROCHLORIDE
     Dosage: PRN
     Route: 065
  7. BENAZEPRIL [Concomitant]
     Active Substance: BENAZEPRIL\BENAZEPRIL HYDROCHLORIDE
     Route: 065
  8. PRILOSEC [Concomitant]
     Active Substance: OMEPRAZOLE MAGNESIUM
  9. ANZEMET [Concomitant]
     Active Substance: DOLASETRON MESYLATE
     Route: 042
  10. 5-FU [Concomitant]
     Active Substance: FLUOROURACIL
     Route: 042
  11. AVASTIN [Suspect]
     Active Substance: BEVACIZUMAB
     Route: 042
  12. TAXOTERE [Concomitant]
     Active Substance: DOCETAXEL
     Route: 042
  13. COUMADIN (UNITED STATES) [Concomitant]
     Route: 065
  14. TAXOTERE [Concomitant]
     Active Substance: DOCETAXEL
     Route: 042
  15. DECADRON [Concomitant]
     Active Substance: DEXAMETHASONE
     Route: 042

REACTIONS (8)
  - Chest pain [Unknown]
  - Renal cancer metastatic [Unknown]
  - Metastases to bone [Unknown]
  - Asthenia [Unknown]
  - Abdominal pain upper [Unknown]
  - Haemoptysis [Unknown]
  - Death [Fatal]
  - Reflux gastritis [Unknown]

NARRATIVE: CASE EVENT DATE: 20070117
